FAERS Safety Report 4725731-5 (Version None)
Quarter: 2005Q3

REPORT INFORMATION
  Report Type: 
  Country: None (occurrence: None)
  Receive Date: 20050722
  Receipt Date: 20050722
  Transmission Date: 20060218
  Serious: Yes (Life-Threatening, Hospitalization)
  Sender: FDA-Public Use
  Company Number: None

PATIENT
  Age: 84 Year
  Sex: Male
  Weight: 66.2252 kg

DRUGS (1)
  1. MIDAZOLAM  1MG/1ML [Suspect]
     Indication: SEDATION
     Dosage: 1 MG X1 INTRAVENOUS
     Route: 042
     Dates: start: 20050711, end: 20050711

REACTIONS (2)
  - HYPOTENSION [None]
  - PROCEDURAL COMPLICATION [None]
